FAERS Safety Report 17753497 (Version 2)
Quarter: 2021Q2

REPORT INFORMATION
  Report Type: Spontaneous
  Country: US (occurrence: US)
  Receive Date: 20200506
  Receipt Date: 20210505
  Transmission Date: 20210716
  Serious: No
  Sender: FDA-Public Use
  Company Number: US-ROCHE-2546971

PATIENT
  Sex: Male

DRUGS (14)
  1. BREO ELLIPTA [Concomitant]
     Active Substance: FLUTICASONE FUROATE\VILANTEROL TRIFENATATE
  2. FLUTICASONE. [Concomitant]
     Active Substance: FLUTICASONE
  3. OMEPRAZOLE. [Concomitant]
     Active Substance: OMEPRAZOLE
  4. KLONOPIN [Suspect]
     Active Substance: CLONAZEPAM
     Indication: PRODUCT USED FOR UNKNOWN INDICATION
     Route: 065
  5. SOTALOL HCL [Concomitant]
     Active Substance: SOTALOL
  6. PROAIR HFA [Concomitant]
     Active Substance: ALBUTEROL SULFATE
  7. BENAZEPRIL [Concomitant]
     Active Substance: BENAZEPRIL HYDROCHLORIDE
  8. MUCINEX [Concomitant]
     Active Substance: GUAIFENESIN
  9. ATORVASTATIN [Concomitant]
     Active Substance: ATORVASTATIN
  10. ELIQUIS [Concomitant]
     Active Substance: APIXABAN
  11. ESBRIET [Suspect]
     Active Substance: PIRFENIDONE
     Indication: IDIOPATHIC PULMONARY FIBROSIS
     Dosage: TAKE 1 TABLETS BY MOUTH 3 TIMES A DAY WITH MEALS
     Route: 048
  12. ADVAIR DISKUS [Concomitant]
     Active Substance: FLUTICASONE PROPIONATE\SALMETEROL XINAFOATE
  13. DILTIAZEM HCL [Concomitant]
     Active Substance: DILTIAZEM HYDROCHLORIDE
  14. PREDNISONE. [Concomitant]
     Active Substance: PREDNISONE

REACTIONS (2)
  - No adverse event [Unknown]
  - Product dose omission issue [Unknown]
